FAERS Safety Report 4613967-3 (Version None)
Quarter: 2005Q1

REPORT INFORMATION
  Report Type: 
  Country: None (occurrence: None)
  Receive Date: 20050321
  Receipt Date: 20050106
  Transmission Date: 20050727
  Serious: Yes (Hospitalization)
  Sender: FDA-Public Use
  Company Number: US-ROCHE-391983

PATIENT
  Age: 58 Year
  Sex: Male
  Weight: 78.5 kg

DRUGS (23)
  1. CELLCEPT [Suspect]
     Route: 048
  2. VALCYTE [Suspect]
     Indication: DRUG USE FOR UNKNOWN INDICATION
     Dosage: EVERY MORNING.
     Route: 048
     Dates: end: 20050105
  3. PROGRAF [Suspect]
     Indication: DRUG USE FOR UNKNOWN INDICATION
     Route: 065
  4. PREDNISONE [Concomitant]
  5. NEORAL [Concomitant]
  6. ARANESP [Concomitant]
  7. DURAGESIC-100 [Concomitant]
  8. LORCET-HD [Concomitant]
  9. DARVOCET [Concomitant]
  10. NEURONTIN [Concomitant]
  11. NOVOLIN N [Concomitant]
  12. NOVOLIN R [Concomitant]
  13. NOVOLOG [Concomitant]
  14. NORVASC [Concomitant]
  15. HALDOL [Concomitant]
  16. LASIX [Concomitant]
  17. REMERON [Concomitant]
  18. TYLENOL (CAPLET) [Concomitant]
     Dosage: ^TYLENOL STRESSTABS^
  19. DOCUSATE [Concomitant]
  20. LACTULOSE [Concomitant]
  21. MAG-OX 400 [Concomitant]
  22. NIFEREX FORTE [Concomitant]
  23. PROTONIX [Concomitant]

REACTIONS (4)
  - DEMYELINATION [None]
  - INFECTION [None]
  - METABOLIC ENCEPHALOPATHY [None]
  - TRANSPLANT REJECTION [None]
